FAERS Safety Report 24307202 (Version 3)
Quarter: 2024Q3

REPORT INFORMATION
  Report Type: Report from Study
  Country: CN (occurrence: CN)
  Receive Date: 20240911
  Receipt Date: 20240927
  Transmission Date: 20241017
  Serious: Yes (Hospitalization, Other)
  Sender: Unknown Manufacturer
  Company Number: CN-CSTONE PHARMACEUTICALS (SUZHOU) CO., LTD.-2024CN01129

PATIENT

DRUGS (1)
  1. PRALSETINIB [Suspect]
     Active Substance: PRALSETINIB
     Indication: Lung adenocarcinoma
     Dosage: 400 MILLIGRAM, QD
     Route: 048
     Dates: start: 202401

REACTIONS (3)
  - Cardiac failure [Recovering/Resolving]
  - Gastric haemorrhage [Recovering/Resolving]
  - Haematemesis [Recovering/Resolving]

NARRATIVE: CASE EVENT DATE: 20240201
